FAERS Safety Report 20015449 (Version 1)
Quarter: 2021Q4

REPORT INFORMATION
  Report Type: Spontaneous
  Country: US (occurrence: None)
  Receive Date: 20211030
  Receipt Date: 20211030
  Transmission Date: 20220303
  Serious: Yes (Disabling, Other)
  Sender: FDA-Public Use
  Company Number: None

PATIENT
  Age: 49 Year
  Sex: Female
  Weight: 58.95 kg

DRUGS (7)
  1. KENALOG-40 [Suspect]
     Active Substance: TRIAMCINOLONE ACETONIDE
     Indication: Dermatitis contact
     Dosage: OTHER QUANTITY : 1 INJECTION(S);?OTHER FREQUENCY : ONE TIME;?
     Route: 030
     Dates: start: 20160821, end: 20160821
  2. ZINC [Concomitant]
     Active Substance: ZINC
  3. VITAMIN B6 [Concomitant]
     Active Substance: PYRIDOXINE HYDROCHLORIDE
  4. PENICILLAMINE [Suspect]
     Active Substance: PENICILLAMINE
  5. VITAMIN C [Concomitant]
     Active Substance: ASCORBIC ACID
  6. VITAMIN D3 [Concomitant]
     Active Substance: CHOLECALCIFEROL
  7. TERBINAFINE [Suspect]
     Active Substance: TERBINAFINE

REACTIONS (5)
  - Sinusitis [None]
  - Tooth loss [None]
  - Wound infection [None]
  - Heavy menstrual bleeding [None]
  - Fungal infection [None]

NARRATIVE: CASE EVENT DATE: 20160821
